FAERS Safety Report 9457495 (Version 1)
Quarter: 2013Q3

REPORT INFORMATION
  Report Type: Spontaneous
  Country: US (occurrence: None)
  Receive Date: 20130812
  Receipt Date: 20130812
  Transmission Date: 20140515
  Serious: No
  Sender: FDA-Public Use
  Company Number: None

PATIENT
  Age: 65 Year
  Sex: Female
  Weight: 64.41 kg

DRUGS (1)
  1. CRESTOR [Suspect]
     Indication: LOW DENSITY LIPOPROTEIN INCREASED
     Dosage: 5MG AND 10MG TEXT ONCE DAILY
     Dates: start: 20130101, end: 20130531

REACTIONS (6)
  - Myalgia [None]
  - Amnesia [None]
  - Dry skin [None]
  - Balance disorder [None]
  - Coordination abnormal [None]
  - Product quality issue [None]
